FAERS Safety Report 6029795-0 (Version None)
Quarter: 2009Q1

REPORT INFORMATION
  Report Type: 
  Country: None (occurrence: None)
  Receive Date: 20090106
  Receipt Date: 20090106
  Transmission Date: 20090719
  Serious: Yes (Other)
  Sender: FDA-Public Use
  Company Number: None

PATIENT
  Sex: Female
  Weight: 92.9874 kg

DRUGS (1)
  1. REMICADE [Suspect]
     Dates: end: 20060801

REACTIONS (1)
  - WALDENSTROM'S MACROGLOBULINAEMIA [None]
